FAERS Safety Report 22181031 (Version 2)
Quarter: 2023Q4

REPORT INFORMATION
  Report Type: Report from Study
  Country: CO (occurrence: CO)
  Receive Date: 20230406
  Receipt Date: 20231023
  Transmission Date: 20240110
  Serious: Yes (Other)
  Sender: FDA-Public Use
  Company Number: CO-ABBVIE-4713455

PATIENT
  Sex: Female
  Weight: 69 kg

DRUGS (3)
  1. HUMIRA [Suspect]
     Active Substance: ADALIMUMAB
     Indication: Rheumatoid arthritis
     Dosage: FORM STRENGTH: 40MG
     Route: 058
     Dates: start: 20090702, end: 20230303
  2. HUMIRA [Suspect]
     Active Substance: ADALIMUMAB
     Dosage: FORM STRENGTH: 40MG?START DATE TEXT: UNKNOWN?ADDITIONAL COMMENTS: SHE WAS NOT AT HOME
     Route: 058
     Dates: end: 20230912
  3. OMEPRAZOLE [Suspect]
     Active Substance: OMEPRAZOLE
     Indication: Product used for unknown indication
     Route: 065

REACTIONS (30)
  - Pneumothorax [Recovering/Resolving]
  - Weight increased [Recovering/Resolving]
  - COVID-19 [Recovering/Resolving]
  - Oliguria [Recovering/Resolving]
  - Vulvovaginal burning sensation [Recovering/Resolving]
  - Urinary tract infection [Recovered/Resolved]
  - Asthma [Recovered/Resolved]
  - Vulvovaginal pain [Recovering/Resolving]
  - Nail disorder [Recovered/Resolved]
  - Immunodeficiency [Recovering/Resolving]
  - Nail infection [Recovered/Resolved]
  - Influenza [Recovering/Resolving]
  - Influenza [Not Recovered/Not Resolved]
  - Dyspepsia [Recovered/Resolved]
  - Oropharyngeal pain [Recovered/Resolved]
  - Muscular weakness [Not Recovered/Not Resolved]
  - Bone disorder [Not Recovered/Not Resolved]
  - Overweight [Recovering/Resolving]
  - Chest discomfort [Unknown]
  - Limb discomfort [Not Recovered/Not Resolved]
  - Meniscus injury [Recovered/Resolved]
  - Visual impairment [Unknown]
  - Musculoskeletal discomfort [Not Recovered/Not Resolved]
  - Drug ineffective [Not Recovered/Not Resolved]
  - Osteoarthritis [Not Recovered/Not Resolved]
  - Throat irritation [Recovered/Resolved]
  - Unevaluable event [Recovered/Resolved]
  - Back pain [Recovered/Resolved]
  - Arthralgia [Recovered/Resolved]
  - Pain [Recovered/Resolved]

NARRATIVE: CASE EVENT DATE: 20150101
